FAERS Safety Report 18124390 (Version 1)
Quarter: 2020Q3

REPORT INFORMATION
  Report Type: Spontaneous
  Country: US (occurrence: US)
  Receive Date: 20200807
  Receipt Date: 20200807
  Transmission Date: 20201103
  Serious: No
  Sender: FDA-Public Use
  Company Number: US-PFIZER INC-2020300207

PATIENT
  Age: 59 Year
  Sex: Female

DRUGS (1)
  1. IBRANCE [Suspect]
     Active Substance: PALBOCICLIB
     Dosage: 125 MG, CYCLIC, (QD  (ONCE A DAY) X 21 DAYS Q28 (EVERY 28) DAYS)
     Dates: start: 20190321

REACTIONS (4)
  - Insomnia [Unknown]
  - Nausea [Unknown]
  - White blood cell count decreased [Unknown]
  - Red blood cell count decreased [Unknown]
